FAERS Safety Report 6185602-7 (Version None)
Quarter: 2009Q2

REPORT INFORMATION
  Report Type: 
  Country: None (occurrence: None)
  Receive Date: 20090507
  Receipt Date: 20090427
  Transmission Date: 20091009
  Serious: Yes (Death, Life-Threatening, Other)
  Sender: FDA-Public Use
  Company Number: MC200900160

PATIENT
  Age: 61 Year
  Sex: Male

DRUGS (5)
  1. ANGIOMAX [Suspect]
     Indication: ANTICOAGULANT THERAPY
  2. LEPIRUDIN (LEPIRUDIN) [Suspect]
     Indication: DEEP VEIN THROMBOSIS
     Dosage: INTRAVENOUS
     Route: 042
  3. WARFARIN SODIUM [Suspect]
     Indication: DEEP VEIN THROMBOSIS
     Dosage: 2 TO 10 MG, QD
  4. ASPIRIN [Suspect]
     Dosage: 325 MG, QD
  5. ENOXAPARIN SODIUM [Concomitant]

REACTIONS (7)
  - HAEMATOCRIT DECREASED [None]
  - HAEMORRHAGE INTRACRANIAL [None]
  - INTERNATIONAL NORMALISED RATIO INCREASED [None]
  - MELAENA [None]
  - MUSCLE CONTRACTIONS INVOLUNTARY [None]
  - RESPIRATORY ARREST [None]
  - UNRESPONSIVE TO STIMULI [None]
